FAERS Safety Report 11158246 (Version 1)
Quarter: 2015Q2

REPORT INFORMATION
  Report Type: Spontaneous
  Country: US (occurrence: None)
  Receive Date: 20150514
  Receipt Date: 20150514
  Transmission Date: 20150821
  Serious: Yes (Death)
  Sender: FDA-Public Use
  Company Number: 2015010058

PATIENT
  Age: 55 Year
  Sex: Male

DRUGS (2)
  1. ZOLPIDEM (ZOLPIDEM) [Suspect]
     Active Substance: ZOLPIDEM TARTRATE
  2. PREGABALIN (PREGABALIN) [Suspect]
     Active Substance: PREGABALIN

REACTIONS (2)
  - Completed suicide [None]
  - Cardio-respiratory arrest [None]

NARRATIVE: CASE EVENT DATE: 2013
